FAERS Safety Report 4706264-9 (Version None)
Quarter: 2005Q2

REPORT INFORMATION
  Report Type: 
  Country: None (occurrence: None)
  Receive Date: 20050629
  Receipt Date: 20050418
  Transmission Date: 20051028
  Serious: No
  Sender: FDA-Public Use
  Company Number: 05P-163-0297924-00

PATIENT
  Age: 75 Year
  Sex: Female
  Weight: 79.3795 kg

DRUGS (9)
  1. HUMIRA [Suspect]
     Indication: RHEUMATOID ARTHRITIS
     Dosage: 40 MG, 1 IN 2 WK, SUBCUTANEOUS
     Route: 058
     Dates: start: 20040101
  2. METHOTREXATE SODIUM [Concomitant]
  3. ALENDRONATE SODIUM [Concomitant]
  4. FOLIC ACID [Concomitant]
  5. ESTROGENS CONJUGATED [Concomitant]
  6. MELOXICAM [Concomitant]
  7. VENLAFAXINE HCL [Concomitant]
  8. MULTI-VITAMINS [Concomitant]
  9. CALCIUM GLUCONATE [Concomitant]

REACTIONS (1)
  - INFLUENZA LIKE ILLNESS [None]
